FAERS Safety Report 9656867 (Version 2)
Quarter: 2013Q4

REPORT INFORMATION
  Report Type: Spontaneous
  Country: FR (occurrence: None)
  Receive Date: 20131028
  Receipt Date: 20131108
  Transmission Date: 20140711
  Serious: Yes (Hospitalization)
  Sender: FDA-Public Use
  Company Number: SYM-2013-12112

PATIENT
  Age: 59 Year
  Sex: Female

DRUGS (4)
  1. 5 FU (FLUOROURACIL) (SOLUTION FOR INFUSION) (FLUOROURACIL) [Suspect]
     Indication: COLORECTAL CANCER METASTATIC
     Dosage: EVERY CYCLE, INTRAVENOUS DRIP
     Route: 041
     Dates: start: 20130708, end: 20130708
  2. AFLIBERCEPT (AFLIBERCEPT) (SOLUTION FOR INFUSION) (AFLIBERCEPT) [Suspect]
     Indication: COLORECTAL CANCER METASTATIC
     Route: 042
     Dates: start: 20130708, end: 20130708
  3. OXALIPLATIN (OXALIPLATIN) (SOLUTION FOR INFUSION) (FOLINC ACID) [Suspect]
     Indication: COLORECTAL CANCER METASTATIC
     Route: 042
     Dates: start: 20130708, end: 20130708
  4. LEUCOVORIN (FOLINIC ACID) (SOLUTION FOR INFUSION) (FOLINIC ACID) [Suspect]
     Indication: COLORECTAL CANCER METASTATIC
     Route: 042
     Dates: start: 20130708, end: 20130708

REACTIONS (3)
  - Hypertension [None]
  - Convulsion [None]
  - Loss of consciousness [None]
